FAERS Safety Report 11702798 (Version 1)
Quarter: 2015Q4

REPORT INFORMATION
  Report Type: Report from Study
  Country: US (occurrence: US)
  Receive Date: 20151105
  Receipt Date: 20151105
  Transmission Date: 20160304
  Serious: Yes (Hospitalization)
  Sender: FDA-Public Use
  Company Number: US-EISAI MEDICAL RESEARCH-EC-2015-010641

PATIENT
  Age: 77 Year
  Sex: Male
  Weight: 68.5 kg

DRUGS (20)
  1. VITAMIN D [Concomitant]
     Active Substance: CHOLECALCIFEROL
  2. LENVIMA [Suspect]
     Active Substance: LENVATINIB
     Indication: THYROID CANCER
     Route: 048
     Dates: start: 20150914, end: 201510
  3. LORAZEPAM. [Concomitant]
     Active Substance: LORAZEPAM
  4. PREDNISONE. [Concomitant]
     Active Substance: PREDNISONE
  5. FENOFIBRATE. [Concomitant]
     Active Substance: FENOFIBRATE
  6. FENTANYL. [Concomitant]
     Active Substance: FENTANYL
  7. VITAMIN B-50 COMPLEX [Concomitant]
  8. XANAX [Suspect]
     Active Substance: ALPRAZOLAM
     Indication: PRODUCT USED FOR UNKNOWN INDICATION
     Dosage: UNKNOWN
     Dates: start: 201510
  9. ENALAPRIL MALEATE. [Concomitant]
     Active Substance: ENALAPRIL MALEATE
  10. ASPIRIN. [Concomitant]
     Active Substance: ASPIRIN
  11. METOPROLOL TARTRATE. [Concomitant]
     Active Substance: METOPROLOL TARTRATE
  12. PERCOCET [Concomitant]
     Active Substance: ACETAMINOPHEN\OXYCODONE HYDROCHLORIDE
  13. FERROUS SULFATE [Concomitant]
     Active Substance: FERROUS SULFATE\FERROUS SULFATE, DRIED
  14. ONDANSETRON HCL [Concomitant]
     Active Substance: ONDANSETRON HYDROCHLORIDE
  15. GABAPENTIN. [Concomitant]
     Active Substance: GABAPENTIN
  16. LEVOXYL [Concomitant]
     Active Substance: LEVOTHYROXINE SODIUM
  17. LAXATIVE [Concomitant]
     Active Substance: UNSPECIFIED INGREDIENT
  18. TAMSULOSIN HCL [Concomitant]
     Active Substance: TAMSULOSIN
  19. CYCLOBENZAPRINE HCL [Concomitant]
     Active Substance: CYCLOBENZAPRINE HYDROCHLORIDE
  20. ENSURE [Concomitant]
     Active Substance: AMINO ACIDS\DEXTROSE\ELECTROLYTES NOS\SOYBEAN OIL\VITAMINS

REACTIONS (11)
  - Fatigue [Unknown]
  - Headache [Recovered/Resolved]
  - Candida infection [Unknown]
  - Vomiting [Unknown]
  - Hypertension [Unknown]
  - Altered state of consciousness [Unknown]
  - Pneumonia [Unknown]
  - Decreased appetite [Unknown]
  - Diarrhoea [Unknown]
  - Cystitis [Unknown]
  - Epistaxis [Unknown]

NARRATIVE: CASE EVENT DATE: 201509
